FAERS Safety Report 6811957-3 (Version None)
Quarter: 2010Q3

REPORT INFORMATION
  Report Type: 
  Country: None (occurrence: None)
  Receive Date: 20100701
  Receipt Date: 20100617
  Transmission Date: 20110219
  Serious: Yes (Other)
  Sender: FDA-Public Use
  Company Number: CN-RANBAXY-2010RR-35255

PATIENT
  Sex: Female
  Weight: 0.95 kg

DRUGS (4)
  1. AMLODIPINE [Suspect]
     Dosage: 2.5 MG, UNK
     Route: 064
  2. MAGNESIUM SULFATE [Suspect]
     Dosage: 2 G, UNK
     Route: 064
  3. MAGNESIUM SULFATE [Suspect]
     Dosage: 10 G, UNK
     Route: 064
  4. LABETALOL HCL [Concomitant]
     Dosage: 100 MG, BID
     Route: 064

REACTIONS (2)
  - APGAR SCORE LOW [None]
  - PREMATURE BABY [None]
